FAERS Safety Report 6232661-9 (Version None)
Quarter: 2009Q2

REPORT INFORMATION
  Report Type: 
  Country: None (occurrence: None)
  Receive Date: 20090617
  Receipt Date: 20090605
  Transmission Date: 20091009
  Serious: Yes (Other)
  Sender: FDA-Public Use
  Company Number: US-PFIZER INC-2009225669

PATIENT
  Sex: Female
  Weight: 54.422 kg

DRUGS (2)
  1. DEPO-MEDROL [Suspect]
     Dosage: UNK
  2. DEPO-PROVERA [Concomitant]
     Dosage: EVERY 3 MONTHS

REACTIONS (3)
  - HYPERSENSITIVITY [None]
  - MONOPLEGIA [None]
  - REACTION TO DRUG EXCIPIENTS [None]
